FAERS Safety Report 7164532-8 (Version None)
Quarter: 2010Q4

REPORT INFORMATION
  Report Type: 
  Country: None (occurrence: None)
  Receive Date: 20101215
  Receipt Date: 20101213
  Transmission Date: 20110411
  Serious: Yes (Hospitalization, Other)
  Sender: FDA-Public Use
  Company Number: IN-ROXANE LABORATORIES, INC.-2010-RO-01676RO

PATIENT
  Age: 54 Year
  Sex: Female

DRUGS (8)
  1. LITHIUM CARBONATE [Suspect]
     Indication: DEPRESSIVE SYMPTOM
     Dosage: 300 MG
  2. LITHIUM CARBONATE [Suspect]
     Dosage: 600 MG
  3. LITHIUM CARBONATE [Suspect]
     Dosage: 900 MG
  4. RISPERIDONE [Suspect]
     Indication: DEPRESSION
  5. RISPERIDONE [Suspect]
     Indication: PSYCHOTIC BEHAVIOUR
  6. SERTRALINE [Suspect]
     Indication: DEPRESSIVE SYMPTOM
     Dosage: 150 MG
  7. VENLAFAXINE [Suspect]
     Indication: DEPRESSIVE SYMPTOM
     Dosage: 300 MG
  8. QUETIAPINE FUMARATE [Suspect]
     Indication: DEPRESSIVE SYMPTOM
     Dosage: 125 MG

REACTIONS (3)
  - DRUG INEFFECTIVE [None]
  - DRUG RASH WITH EOSINOPHILIA AND SYSTEMIC SYMPTOMS [None]
  - EXTRAPYRAMIDAL DISORDER [None]
